FAERS Safety Report 5440954-8 (Version None)
Quarter: 2007Q3

REPORT INFORMATION
  Report Type: 
  Country: None (occurrence: None)
  Receive Date: 20070731
  Receipt Date: 20070606
  Transmission Date: 20080115
  Serious: No
  Sender: FDA-Public Use
  Company Number: US200706001536

PATIENT
  Age: 62 Year
  Sex: Female

DRUGS (4)
  1. BYETTA [Suspect]
     Indication: TYPE 2 DIABETES MELLITUS
     Dosage: 5 UG, 2/D, SUBCUTANEOUS
     Route: 058
     Dates: start: 20070606
  2. EXENATIDE                  5MCG PEN, [Concomitant]
  3. GLYBURIDE [Concomitant]
  4. AVANDIA                      (ROSIGLIRAZONE MALEATE) [Concomitant]

REACTIONS (3)
  - EYE SWELLING [None]
  - SINUS HEADACHE [None]
  - SNEEZING [None]
